FAERS Safety Report 13506681 (Version 1)
Quarter: 2017Q2

REPORT INFORMATION
  Report Type: Spontaneous
  Country: US (occurrence: US)
  Receive Date: 20170502
  Receipt Date: 20170502
  Transmission Date: 20170830
  Serious: Yes (Other)
  Sender: FDA-Public Use
  Company Number: US-ROCHE-1310365

PATIENT
  Sex: Female

DRUGS (1)
  1. AVASTIN [Suspect]
     Active Substance: BEVACIZUMAB
     Indication: PRODUCT USED FOR UNKNOWN INDICATION
     Route: 065
     Dates: start: 200612

REACTIONS (7)
  - Amnesia [Unknown]
  - Hypertension [Unknown]
  - Cerebrovascular accident [Unknown]
  - Hypoaesthesia [Unknown]
  - Cognitive disorder [Unknown]
  - Arthralgia [Unknown]
  - Speech disorder [Unknown]
